FAERS Safety Report 15248522 (Version 1)
Quarter: 2018Q3

REPORT INFORMATION
  Report Type: Spontaneous
  Country: KW (occurrence: KW)
  Receive Date: 20180715
  Receipt Date: 20180715
  Transmission Date: 20181010
  Serious: Yes (Other)
  Sender: FDA-Public Use
  Company Number: None

PATIENT
  Age: 45 Day
  Sex: Female
  Weight: 5 kg

DRUGS (2)
  1. COLIPREV [Concomitant]
  2. ZYME (LYSOZYME\SODIUM CHLORIDE) [Suspect]
     Active Substance: LYSOZYME\SODIUM CHLORIDE
     Indication: NASAL CONGESTION
     Dosage: ?          OTHER ROUTE:SPRAYED?
     Dates: start: 20180715, end: 20180715

REACTIONS (2)
  - Rhinalgia [None]
  - Pain [None]

NARRATIVE: CASE EVENT DATE: 20180715
